FAERS Safety Report 16908928 (Version 1)
Quarter: 2019Q4

REPORT INFORMATION
  Report Type: Spontaneous
  Country: US (occurrence: US)
  Receive Date: 20191011
  Receipt Date: 20191011
  Transmission Date: 20200122
  Serious: Yes (Life-Threatening, Other)
  Sender: FDA-Public Use
  Company Number: US-BAYER-2019-183367

PATIENT
  Age: 52 Year
  Sex: Male

DRUGS (2)
  1. ACETYLSALICYLIC ACID (CARDIO) [Suspect]
     Active Substance: ASPIRIN
     Indication: MYOCARDIAL INFARCTION
  2. TICAGRELOR. [Interacting]
     Active Substance: TICAGRELOR

REACTIONS (4)
  - Platelet aggregation decreased [None]
  - Labelled drug-drug interaction medication error [None]
  - Pericardial haemorrhage [None]
  - Haemothorax [None]
